FAERS Safety Report 8333444 (Version 3)
Quarter: 2013Q4

REPORT INFORMATION
  Report Type: Spontaneous
  Country: GB (occurrence: GB)
  Receive Date: 20120112
  Receipt Date: 20131016
  Transmission Date: 20140711
  Serious: Yes (Hospitalization)
  Sender: FDA-Public Use
  Company Number: GB-PFIZER INC-2012005403

PATIENT
  Age: 59 Year
  Sex: Female

DRUGS (1)
  1. EPANUTIN [Suspect]
     Dosage: 30MG/5ML

REACTIONS (1)
  - Anticonvulsant drug level increased [Unknown]
